FAERS Safety Report 7622616-1 (Version None)
Quarter: 2011Q3

REPORT INFORMATION
  Report Type: 
  Country: None (occurrence: None)
  Receive Date: 20110701
  Receipt Date: 20100917
  Transmission Date: 20111222
  Serious: Yes (Other)
  Sender: FDA-Public Use
  Company Number: 7018069

PATIENT
  Age: 44 Year

DRUGS (2)
  1. REBIF [Suspect]
     Indication: MULTIPLE SCLEROSIS
     Dosage: 44 MCG, 3 IN 1 WK, SUBCUTANEOUS
     Route: 058
     Dates: start: 20080314
  2. WELLBUTRIN [Suspect]
     Indication: DEPRESSION
     Dates: end: 20100802

REACTIONS (2)
  - INJECTION SITE HAEMATOMA [None]
  - CONVULSION [None]
